FAERS Safety Report 4609429-X (Version None)
Quarter: 2005Q1

REPORT INFORMATION
  Report Type: 
  Country: None (occurrence: None)
  Receive Date: 20050314
  Receipt Date: 20050301
  Transmission Date: 20050727
  Serious: Yes (Hospitalization)
  Sender: FDA-Public Use
  Company Number: 2005040567

PATIENT
  Age: 66 Year
  Sex: Female
  Weight: 65.5 kg

DRUGS (9)
  1. ALDACTONE [Suspect]
     Indication: ILL-DEFINED DISORDER
     Dosage: 25 MG (DAILY), ORAL
     Route: 048
     Dates: end: 20041205
  2. CHLOROQUINE PHOSPHAGE (CHLOROQUINE PHOSPHATE) [Concomitant]
     Indication: ILL-DEFINED DISORDER
     Dosage: 1 DF (DAILY), ORAL
     Route: 048
     Dates: start: 20041017, end: 20041205
  3. DIGOXIN [Suspect]
     Indication: ILL-DEFINED DISORDER
     Dosage: 0.12 MG (DAILY), ORAL
     Route: 048
     Dates: end: 20041205
  4. TRIMETAZIDINE HYDROCHLORIDE (TRIMETAZIDINE HYDROCHLORIDE) [Suspect]
     Indication: ILL-DEFINED DISORDER
     Dosage: 70 MG (35 MG, BID), ORAL
     Route: 048
     Dates: end: 20041205
  5. SAVRINE (CHLOROQUINE, PROGUANIL HYDROCHLORIDE) [Concomitant]
     Indication: ILL-DEFINED DISORDER
     Dosage: 1 DF (DAILY), ORAL
     Route: 048
     Dates: start: 20041017, end: 20041205
  6. AMIODARONE HCL [Concomitant]
  7. FLUINDIONE (FLUINDIONE) [Concomitant]
  8. ATENOLOL [Concomitant]
  9. FENOFIBRATE [Concomitant]

REACTIONS (11)
  - ASTHENIA [None]
  - BLOOD PRESSURE DIASTOLIC DECREASED [None]
  - BLOOD PRESSURE SYSTOLIC INCREASED [None]
  - BRADYCARDIA [None]
  - C-REACTIVE PROTEIN INCREASED [None]
  - CYTOLYTIC HEPATITIS [None]
  - DRUG HYPERSENSITIVITY [None]
  - HEPATITIS ACUTE [None]
  - HEPATOMEGALY [None]
  - MALAISE [None]
  - RENAL FAILURE ACUTE [None]
